FAERS Safety Report 23912121 (Version 1)
Quarter: 2024Q2

REPORT INFORMATION
  Report Type: Report from Study
  Country: CA (occurrence: CA)
  Receive Date: 20240528
  Receipt Date: 20240528
  Transmission Date: 20240717
  Serious: Yes (Hospitalization, Other)
  Sender: FDA-Public Use
  Company Number: CA-SANDOZ-SDZ2023CA019955

PATIENT
  Sex: Male
  Weight: 26.304 kg

DRUGS (2)
  1. ERELZI [Suspect]
     Active Substance: ETANERCEPT-SZZS
     Dosage: 50 MG, QW(WEEKLY)
     Route: 058
     Dates: start: 20230626
  2. ERELZI [Suspect]
     Active Substance: ETANERCEPT-SZZS
     Indication: Ankylosing spondylitis
     Dosage: 50 MG
     Route: 058

REACTIONS (3)
  - Abdominal pain [Unknown]
  - Diverticulitis [Unknown]
  - Product dose omission issue [Unknown]
